FAERS Safety Report 7269444-7 (Version None)
Quarter: 2011Q1

REPORT INFORMATION
  Report Type: 
  Country: None (occurrence: None)
  Receive Date: 20110202
  Receipt Date: 20110119
  Transmission Date: 20110831
  Serious: Yes (Death)
  Sender: FDA-Public Use
  Company Number: US-ELI_LILLY_AND_COMPANY-US201008004802

PATIENT
  Sex: Male

DRUGS (3)
  1. PREDNISONE [Concomitant]
  2. COUMADIN [Concomitant]
  3. FORTEO [Suspect]
     Indication: OSTEOPOROSIS
     Dosage: 20 UG, DAILY (1/D)

REACTIONS (3)
  - DEATH [None]
  - VISUAL IMPAIRMENT [None]
  - INJECTION SITE HAEMATOMA [None]
